FAERS Safety Report 6671711-2 (Version None)
Quarter: 2010Q2

REPORT INFORMATION
  Report Type: 
  Country: None (occurrence: None)
  Receive Date: 20100407
  Receipt Date: 20100325
  Transmission Date: 20101027
  Serious: Yes (Other)
  Sender: FDA-Public Use
  Company Number: PHHY2010JP18438

PATIENT
  Sex: Female

DRUGS (4)
  1. TASIGNA [Suspect]
     Indication: CHRONIC MYELOID LEUKAEMIA TRANSFORMATION
     Dosage: 800 MG DAILY
     Route: 048
     Dates: start: 20100204, end: 20100209
  2. PREDNISOLONE [Concomitant]
     Indication: CHRONIC MYELOID LEUKAEMIA TRANSFORMATION
     Dosage: 100 MG, UNK
     Route: 048
     Dates: start: 20100204, end: 20100208
  3. ONCOVIN [Concomitant]
     Indication: CHRONIC MYELOID LEUKAEMIA
     Dosage: 2 MG, DR
     Dates: start: 20100204, end: 20100204
  4. BACTRAMIN [Concomitant]
     Indication: PROPHYLAXIS
     Dosage: 1 G, UNK
     Route: 048
     Dates: start: 20100128

REACTIONS (5)
  - ELECTROCARDIOGRAM QT PROLONGED [None]
  - HAEMOGLOBIN DECREASED [None]
  - MALIGNANT NEOPLASM PROGRESSION [None]
  - PLATELET COUNT DECREASED [None]
  - WHITE BLOOD CELL COUNT DECREASED [None]
